FAERS Safety Report 7248844-5 (Version None)
Quarter: 2011Q1

REPORT INFORMATION
  Report Type: 
  Country: None (occurrence: None)
  Receive Date: 20110128
  Receipt Date: 20091120
  Transmission Date: 20110831
  Serious: Yes (Disabling, Other)
  Sender: FDA-Public Use
  Company Number: US-BAYER-200930003NA

PATIENT
  Sex: Male
  Weight: 65.306 kg

DRUGS (27)
  1. MAGNEVIST [Suspect]
     Indication: NUCLEAR MAGNETIC RESONANCE IMAGING BRAIN
     Dosage: UNK
     Dates: start: 20030725, end: 20030725
  2. OMNISCAN [Suspect]
  3. OMEPRAZOLE [Concomitant]
     Dosage: 20 MG, QD
  4. MULTIHANCE [Suspect]
     Indication: ANGIOGRAM
  5. PROHANCE [Suspect]
     Indication: ANGIOGRAM
  6. MAGNEVIST [Suspect]
     Indication: ANGIOGRAM
     Dosage: UNK
     Dates: start: 20020108, end: 20020108
  7. OMNISCAN [Suspect]
     Indication: ANGIOGRAM
  8. MULTIHANCE [Suspect]
     Indication: PRODUCT USED FOR UNKNOWN INDICATION
  9. PHOSLO [Concomitant]
     Dosage: 1134 MG, BID
  10. PREDNISONE [Concomitant]
     Indication: INFLAMMATION
     Dosage: 4 MG, QD
  11. FOSRENOL [Concomitant]
     Dosage: 1000 MG, TID
  12. CARDIZEM [Concomitant]
     Indication: HYPERTENSION
     Dosage: 180 MG, UNK
  13. PROHANCE [Suspect]
     Indication: PRODUCT USED FOR UNKNOWN INDICATION
  14. ZOCOR [Concomitant]
     Indication: BLOOD CHOLESTEROL ABNORMAL
     Dosage: 20 MG, QD
  15. IMDUR [Concomitant]
     Indication: CARDIAC DISORDER
     Dosage: 60 MG, QD
  16. BACID [Concomitant]
     Dosage: 1 CAP BID
  17. CONTRAST MEDIA [Concomitant]
     Indication: COMPUTERISED TOMOGRAM ABDOMEN
     Dosage: UNK
     Dates: start: 20030725, end: 20030725
  18. CONTRAST MEDIA [Concomitant]
     Indication: COMPUTERISED TOMOGRAM THORAX
  19. OPTIMARK [Suspect]
     Indication: ANGIOGRAM
  20. OPTIMARK [Suspect]
     Indication: PRODUCT USED FOR UNKNOWN INDICATION
  21. KEPPRA [Concomitant]
     Indication: CONVULSION PROPHYLAXIS
     Dosage: 250 EVERY 12 HOURS
  22. TOPROL-XL [Concomitant]
     Indication: HYPERTENSION
     Dosage: 75 MG, BID
  23. GADOLINIUM IN UNSPECIFIED DRUG [Suspect]
     Indication: NUCLEAR MAGNETIC RESONANCE IMAGING BRAIN
     Dosage: UNK
     Dates: start: 20030801, end: 20030801
  24. SIMVASTATIN [Concomitant]
     Dosage: 20 MG, QD
  25. ALBUTEROL [Concomitant]
     Route: 055
  26. EPOGEN [Concomitant]
     Dosage: 15000U WITH DIALYSIS WEEKLY
  27. CYTOXAN [Concomitant]
     Indication: RENAL FAILURE
     Route: 042

REACTIONS (9)
  - PHYSICAL DISABILITY [None]
  - NEPHROGENIC SYSTEMIC FIBROSIS [None]
  - PAIN [None]
  - SKIN TIGHTNESS [None]
  - JOINT CONTRACTURE [None]
  - JOINT STIFFNESS [None]
  - MUSCLE RIGIDITY [None]
  - SKIN HYPERTROPHY [None]
  - JOINT RANGE OF MOTION DECREASED [None]
